FAERS Safety Report 16851774 (Version 1)
Quarter: 2019Q3

REPORT INFORMATION
  Report Type: Spontaneous
  Country: CA (occurrence: CA)
  Receive Date: 20190925
  Receipt Date: 20190925
  Transmission Date: 20191005
  Serious: Yes (Other)
  Sender: FDA-Public Use
  Company Number: CA-PFIZER INC-2019405935

PATIENT
  Age: 68 Year
  Sex: Male

DRUGS (5)
  1. METHOTREXATE SODIUM. [Suspect]
     Active Substance: METHOTREXATE SODIUM
     Dosage: 20MG Q UNK
     Route: 065
     Dates: start: 201811
  2. CORTISONE [Concomitant]
     Active Substance: CORTISONE
     Dosage: 4 MG, 1X/DAY
  3. HYDROXYCHLOROQUINE [Concomitant]
     Active Substance: HYDROXYCHLOROQUINE
     Dosage: 400MG Q UNK
     Dates: start: 201805
  4. CORTISONE [Concomitant]
     Active Substance: CORTISONE
     Dosage: 50 MG, UNK
  5. PLAQUENIL [HYDROXYCHLOROQUINE PHOSPHATE] [Concomitant]
     Active Substance: HYDROXYCHLOROQUINE DIPHOSPHATE
     Dosage: UNK

REACTIONS (8)
  - Polymyalgia rheumatica [Unknown]
  - Paralysis [Unknown]
  - Immunodeficiency [Unknown]
  - Fatigue [Unknown]
  - Walking aid user [Unknown]
  - Joint injury [Unknown]
  - Drug ineffective [Not Recovered/Not Resolved]
  - Somnolence [Unknown]
